FAERS Safety Report 11144636 (Version 1)
Quarter: 2015Q2

REPORT INFORMATION
  Report Type: Spontaneous
  Country: US (occurrence: None)
  Receive Date: 20150526
  Receipt Date: 20150526
  Transmission Date: 20150821
  Serious: No
  Sender: FDA-Public Use
  Company Number: 2015-00047

PATIENT
  Age: 59 Year
  Sex: Female
  Weight: 75.75 kg

DRUGS (1)
  1. ZICAM COLD REMEDY NASAL SPRAY [Suspect]
     Active Substance: HOMEOPATHICS
     Indication: SINUSITIS
     Dosage: 1 SPRAY NASALLY EVERY 4 HOURS
     Route: 045
     Dates: start: 20150511, end: 20150514

REACTIONS (2)
  - Ageusia [None]
  - Anosmia [None]

NARRATIVE: CASE EVENT DATE: 20150511
